FAERS Safety Report 9399890 (Version 3)
Quarter: 2013Q4

REPORT INFORMATION
  Report Type: Spontaneous
  Country: US (occurrence: None)
  Receive Date: 20130710
  Receipt Date: 20131003
  Transmission Date: 20140711
  Serious: Yes (Hospitalization, Disabling)
  Sender: FDA-Public Use
  Company Number: 2013MPI00391

PATIENT
  Age: 74 Year
  Sex: Male
  Weight: 98.7 kg

DRUGS (17)
  1. BRENTUXIMAB VEDOTIN (BRENTUXIMAB VEDOTIN) INJECTION [Suspect]
     Indication: HODGKIN^S DISEASE
     Dosage: 1.2 MG/KG, QCYCLE, INTRAVENOUS
     Route: 042
     Dates: start: 20130612, end: 20130612
  2. DOXORUBICIN [Suspect]
     Indication: HODGKIN^S DISEASE
     Dosage: 25 MG/M2, QCYCLE, INTRAVENOUS
     Route: 042
     Dates: start: 20130612, end: 20130612
  3. VINBLASTIN [Suspect]
     Indication: HODGKIN^S DISEASE
     Dosage: 6 MG/M2, QCYCLE, INTRAVENOUS
     Route: 042
     Dates: start: 20130612, end: 20130612
  4. DACARBAZINE [Suspect]
     Indication: HODGKIN^S DISEASE
     Dosage: 375 MG/M2, QCYCLE, INTRAVENOUS
     Route: 042
     Dates: start: 20130612, end: 20130612
  5. ADVAIR (FLUTICASONE PROPIONATE, SALMETEROL XINAFOATE) [Concomitant]
  6. ALBUTEROL (SALBUTAMOL SULFATE) [Concomitant]
  7. ASPIRIN (ACETYLSALICYLIC ACID) [Concomitant]
  8. BYSTOLIC (NEBIVOLOL HYDROCHLORIDE) [Concomitant]
  9. FISH OIL (FISH OIL) [Concomitant]
  10. LIPITOR (ATORVASTATIN CALCIUM) [Concomitant]
  11. LORTAB (HYDROCODONE BITARTRATE, PARACETAMOL, PROMETHAZINE HYDROCHLORIDE) [Concomitant]
  12. MULTI-VITAMINS VITAFIT (CALCIUM PANTOTHENATE, FOLIC ACID, VITAMINS NOS) [Concomitant]
  13. SPIRIVA HANDIHALER (TIOTROPIUM BROMIDE) [Concomitant]
  14. FENOFIBRATE (FENOFIBRATE) (FENOFIBRATE) [Concomitant]
  15. LEVOTHYROXIN 0.05 MG KSA (LEVOTHYROXINE) [Concomitant]
  16. OMEPRAZOLE (OMEPRAZOLE) [Concomitant]
  17. TRAZODONE (TRAZODONE) [Concomitant]

REACTIONS (27)
  - Febrile neutropenia [None]
  - Asthenia [None]
  - Fall [None]
  - Laceration [None]
  - Haemorrhage [None]
  - White blood cell count decreased [None]
  - Neutrophil count decreased [None]
  - Neutrophil count decreased [None]
  - Blood sodium decreased [None]
  - Blood potassium decreased [None]
  - Blood glucose increased [None]
  - Bundle branch block right [None]
  - Productive cough [None]
  - Sputum discoloured [None]
  - Pyrexia [None]
  - Hypophagia [None]
  - Weight decreased [None]
  - Fluid intake reduced [None]
  - Dysphonia [None]
  - Chromaturia [None]
  - Headache [None]
  - Blood pressure systolic increased [None]
  - Thrombocytopenia [None]
  - Anaemia [None]
  - Dehydration [None]
  - Aortic calcification [None]
  - Constipation [None]
